FAERS Safety Report 9689357 (Version 1)
Quarter: 2013Q4

REPORT INFORMATION
  Report Type: Spontaneous
  Country: CN (occurrence: CN)
  Receive Date: 20131114
  Receipt Date: 20131114
  Transmission Date: 20140711
  Serious: Yes (Hospitalization, Other)
  Sender: FDA-Public Use
  Company Number: CN-WATSON-2013-20336

PATIENT
  Age: 41 Year
  Sex: Male

DRUGS (1)
  1. SODIUM VALPROATE (UNKNOWN) [Suspect]
     Indication: CONVULSION PROPHYLAXIS
     Dosage: 0.6 G, DAILY
     Route: 048

REACTIONS (3)
  - Hypofibrinogenaemia [Recovered/Resolved]
  - Intracranial haematoma [Recovered/Resolved with Sequelae]
  - Incision site haematoma [Recovered/Resolved]
